FAERS Safety Report 9857165 (Version 2)
Quarter: 2014Q1

REPORT INFORMATION
  Report Type: Report from Study
  Country: IN (occurrence: IN)
  Receive Date: 20140130
  Receipt Date: 20140205
  Transmission Date: 20141002
  Serious: Yes (Hospitalization)
  Sender: FDA-Public Use
  Company Number: IN-GILEAD-2014-0092945

PATIENT
  Age: 51 Year
  Sex: Male
  Weight: 57 kg

DRUGS (7)
  1. EMTRICITABINE/TENOFOVIR DISOPROXIL FUMARATE [Suspect]
     Indication: HIV INFECTION
     Dosage: 1 DF, QD
     Route: 048
     Dates: start: 20131231
  2. RITONAVIR [Suspect]
     Indication: HIV INFECTION
     Dosage: 100 MG, QD
     Route: 048
     Dates: start: 20131231
  3. ATAZANAVIR [Suspect]
     Indication: HIV INFECTION
     Dosage: 150 MG, BID
     Route: 048
     Dates: start: 20131231
  4. ATAZANAVIR [Suspect]
     Dosage: 400 MG, UNK
     Route: 048
     Dates: start: 20080421, end: 20131230
  5. ZIDOVUDINE W/LAMIVUDINE [Suspect]
     Indication: HIV INFECTION
     Dosage: 1 DF, BID
     Route: 048
     Dates: start: 20080421, end: 20131230
  6. METRONIDAZOLE [Concomitant]
     Indication: PRODUCT USED FOR UNKNOWN INDICATION
     Dosage: 100 MG, TID
     Route: 042
     Dates: start: 20140116
  7. METRONIDAZOLE [Concomitant]
     Dosage: 400 MG, TID
     Route: 065
     Dates: start: 20140110, end: 20140113

REACTIONS (1)
  - Thrombocytopenia [Recovered/Resolved]
